FAERS Safety Report 16697216 (Version 2)
Quarter: 2019Q3

REPORT INFORMATION
  Report Type: Spontaneous
  Country: US (occurrence: US)
  Receive Date: 20190813
  Receipt Date: 20190917
  Transmission Date: 20191004
  Serious: Yes (Other)
  Sender: FDA-Public Use
  Company Number: US-HORIZON-KRY-0570-2019

PATIENT
  Age: 75 Year
  Sex: Female
  Weight: 107.63 kg

DRUGS (1)
  1. KRYSTEXXA [Suspect]
     Active Substance: PEGLOTICASE
     Indication: GOUT
     Dosage: 8MG IV
     Route: 042
     Dates: start: 20190626, end: 20190807

REACTIONS (4)
  - C-reactive protein increased [Unknown]
  - Infusion related reaction [Recovered/Resolved]
  - White blood cell count increased [Unknown]
  - Glomerular filtration rate decreased [Unknown]

NARRATIVE: CASE EVENT DATE: 20190807
